FAERS Safety Report 8879898 (Version 1)
Quarter: 2012Q4

REPORT INFORMATION
  Report Type: 
  Country: CA (occurrence: CA)
  Receive Date: 20121101
  Receipt Date: 20121101
  Transmission Date: 20130627
  Serious: Yes (Other)
  Sender: FDA-Public Use
  Company Number: CA-NAPPMUNDI-CAN-2012-0002942

PATIENT
  Age: 64 Year
  Sex: Male
  Weight: 97.51 kg

DRUGS (4)
  1. OXYNEO 40 MG [Suspect]
     Indication: ANALGESIC THERAPY
     Dosage: 40 mg, tid
     Route: 048
     Dates: start: 201203
  2. CRESTOR [Concomitant]
     Indication: PRODUCT USED FOR UNKNOWN INDICATION
     Dosage: 10 mg, UNK
     Route: 065
  3. SALOFALK                           /00000301/ [Concomitant]
     Indication: PRODUCT USED FOR UNKNOWN INDICATION
     Dosage: UNK
     Route: 065
  4. LYRICA [Concomitant]
     Indication: PRODUCT USED FOR UNKNOWN INDICATION
     Dosage: 75 mg, UNK
     Route: 065

REACTIONS (7)
  - Product substitution issue [Unknown]
  - Drug withdrawal syndrome [Unknown]
  - Irritability [Unknown]
  - Emotional disorder [Unknown]
  - Mood altered [Unknown]
  - Nervousness [Unknown]
  - Hyperhidrosis [Unknown]
